FAERS Safety Report 24446901 (Version 1)
Quarter: 2024Q4

REPORT INFORMATION
  Report Type: Spontaneous
  Country: PL (occurrence: PL)
  Receive Date: 20241016
  Receipt Date: 20241016
  Transmission Date: 20250115
  Serious: Yes (Other)
  Sender: BAUSCH AND LOMB
  Company Number: None

PATIENT
  Age: 1 Month
  Sex: Male

DRUGS (7)
  1. HYDROCORTISONE [Suspect]
     Active Substance: HYDROCORTISONE
     Indication: Product used for unknown indication
     Route: 065
  2. EUVAX B [Suspect]
     Active Substance: HEPATITIS B VIRUS VACCINE
     Indication: Product used for unknown indication
     Route: 065
     Dates: start: 20200214
  3. EUVAX B [Suspect]
     Active Substance: HEPATITIS B VIRUS VACCINE
     Route: 065
  4. BCG VACCINE [Suspect]
     Active Substance: BCG VACCINE
     Indication: Product used for unknown indication
     Route: 065
     Dates: start: 20200214
  5. VITAMIN K [Suspect]
     Active Substance: PHYTONADIONE
     Indication: Product used for unknown indication
     Route: 065
  6. DEXTROSE [Concomitant]
     Active Substance: DEXTROSE MONOHYDRATE
     Indication: Product used for unknown indication
  7. PENTOXIFYLLINE [Concomitant]
     Active Substance: PENTOXIFYLLINE
     Indication: Product used for unknown indication

REACTIONS (5)
  - Apnoea [Unknown]
  - Pallor [Unknown]
  - Hypoglycaemia [Unknown]
  - Decreased appetite [Unknown]
  - Apathy [Unknown]

NARRATIVE: CASE EVENT DATE: 20200214
